FAERS Safety Report 6654536-3 (Version None)
Quarter: 2010Q1

REPORT INFORMATION
  Report Type: 
  Country: None (occurrence: None)
  Receive Date: 20100326
  Receipt Date: 20100318
  Transmission Date: 20100710
  Serious: Yes (Other)
  Sender: FDA-Public Use
  Company Number: US-ROCHE-693109

PATIENT
  Age: 79 Year
  Sex: Female

DRUGS (1)
  1. BEVACIZUMAB [Suspect]
     Route: 031

REACTIONS (1)
  - RETINAL VEIN OCCLUSION [None]
